FAERS Safety Report 9694241 (Version 3)
Quarter: 2013Q4

REPORT INFORMATION
  Report Type: Spontaneous
  Country: US (occurrence: US)
  Receive Date: 20131118
  Receipt Date: 20131230
  Transmission Date: 20140711
  Serious: No
  Sender: FDA-Public Use
  Company Number: US-PFIZER INC-2013327362

PATIENT
  Age: 73 Year
  Sex: Female
  Weight: 56.69 kg

DRUGS (7)
  1. LYRICA [Suspect]
     Indication: FIBROMYALGIA
     Dosage: 75 MG, 3X/DAY
     Route: 048
     Dates: start: 201310
  2. LYRICA [Suspect]
     Indication: MUSCLE SPASMS
  3. LYRICA [Suspect]
     Indication: HYPOAESTHESIA
  4. CYCLOBENZAPRINE [Suspect]
     Indication: MUSCLE SPASMS
     Dosage: UNK, 1X/DAY
  5. CYCLOBENZAPRINE [Suspect]
     Indication: HYPOAESTHESIA
  6. CRESTOR [Concomitant]
     Indication: BLOOD CHOLESTEROL INCREASED
     Dosage: 5 MG, 1X/DAY
  7. ASPIRIN [Concomitant]
     Dosage: 81 MG, AS NEEDED

REACTIONS (9)
  - Off label use [Unknown]
  - Drug ineffective for unapproved indication [Not Recovered/Not Resolved]
  - Hypoaesthesia [Not Recovered/Not Resolved]
  - Musculoskeletal pain [Not Recovered/Not Resolved]
  - Head discomfort [Not Recovered/Not Resolved]
  - Therapeutic response unexpected [Unknown]
  - Weight increased [Unknown]
  - Increased appetite [Unknown]
  - Blood cholesterol increased [Unknown]
